FAERS Safety Report 6623452-5 (Version None)
Quarter: 2010Q1

REPORT INFORMATION
  Report Type: 
  Country: None (occurrence: None)
  Receive Date: 20100305
  Receipt Date: 20100217
  Transmission Date: 20100710
  Serious: Yes (Other)
  Sender: FDA-Public Use
  Company Number: 2010020909

PATIENT
  Age: 73 Year
  Sex: Male

DRUGS (3)
  1. FRAGMIN [Suspect]
     Indication: THROMBOSIS PROPHYLAXIS
     Dosage: 15000 IU
     Dates: start: 20100207
  2. AVAPRO [Concomitant]
  3. LASIX [Concomitant]

REACTIONS (1)
  - RASH GENERALISED [None]
